FAERS Safety Report 25287118 (Version 1)
Quarter: 2025Q2

REPORT INFORMATION
  Report Type: Spontaneous
  Country: JP (occurrence: JP)
  Receive Date: 20250509
  Receipt Date: 20250509
  Transmission Date: 20250716
  Serious: Yes (Other)
  Sender: ACCORD
  Company Number: JP-Accord-483242

PATIENT
  Age: 84 Year
  Sex: Male
  Weight: 61.5 kg

DRUGS (12)
  1. CARBOPLATIN [Suspect]
     Active Substance: CARBOPLATIN
     Indication: Lung squamous cell carcinoma stage III
     Dosage: AREA UNDER THE CURVE OF 5 MG/ML/MIN ON DAY 1
  2. PACLITAXEL [Suspect]
     Active Substance: PACLITAXEL
     Indication: Lung squamous cell carcinoma stage III
     Dosage: DAYS 1, 8, AND 15 ONCE EVERY 3 WEEKS  CYCLE 1
  3. FAMOTIDINE [Concomitant]
     Active Substance: FAMOTIDINE
  4. EDOXABAN [Concomitant]
     Active Substance: EDOXABAN
  5. MEFRUSIDE [Concomitant]
     Active Substance: MEFRUSIDE
  6. LIMAPROST [Concomitant]
     Active Substance: LIMAPROST
  7. TRIAZOLAM [Concomitant]
     Active Substance: TRIAZOLAM
  8. ALLOPURINOL [Concomitant]
     Active Substance: ALLOPURINOL
  9. CARBOPLATIN [Suspect]
     Active Substance: CARBOPLATIN
     Indication: Lymphangiosis carcinomatosa
     Dosage: AREA UNDER THE CURVE OF 5 MG/ML/MIN ON DAY 1
  10. CARBOPLATIN [Suspect]
     Active Substance: CARBOPLATIN
     Indication: Metastases to pleura
     Dosage: AREA UNDER THE CURVE OF 5 MG/ML/MIN ON DAY 1
  11. PACLITAXEL [Suspect]
     Active Substance: PACLITAXEL
     Indication: Lymphangiosis carcinomatosa
     Dosage: DAYS 1, 8, AND 15 ONCE EVERY 3 WEEKS  CYCLE 1
  12. PACLITAXEL [Suspect]
     Active Substance: PACLITAXEL
     Indication: Metastases to pleura
     Dosage: DAYS 1, 8, AND 15 ONCE EVERY 3 WEEKS  CYCLE 1

REACTIONS (1)
  - Inappropriate antidiuretic hormone secretion [Recovered/Resolved]
